FAERS Safety Report 6202141-5 (Version None)
Quarter: 2009Q2

REPORT INFORMATION
  Report Type: 
  Country: None (occurrence: None)
  Receive Date: 20090518
  Receipt Date: 20090319
  Transmission Date: 20091009
  Serious: No
  Sender: FDA-Public Use
  Company Number: WAES 0903USA03640

PATIENT
  Age: 77 Year
  Sex: Female

DRUGS (5)
  1. JANUVIA [Suspect]
     Indication: DIABETES MELLITUS
     Dosage: 100 MG/DAILY/PO
     Route: 048
     Dates: start: 20090305, end: 20090319
  2. FOSINOPRIL SODIUM [Concomitant]
  3. GLIPIZIDE [Concomitant]
  4. SIMVASTATIN [Concomitant]
  5. TIMOLOL MALEATE [Concomitant]

REACTIONS (1)
  - HEADACHE [None]
